FAERS Safety Report 9444245 (Version 3)
Quarter: 2013Q4

REPORT INFORMATION
  Report Type: Report from Study
  Country: DE (occurrence: DE)
  Receive Date: 20130807
  Receipt Date: 20131011
  Transmission Date: 20140711
  Serious: Yes (Hospitalization)
  Sender: FDA-Public Use
  Company Number: PHHY2013DE083812

PATIENT
  Sex: Male
  Weight: 99 kg

DRUGS (4)
  1. ICL670A [Suspect]
     Indication: MYELODYSPLASTIC SYNDROME
     Dosage: 1500 UNK
     Route: 048
     Dates: start: 20130125
  2. METOPROLOL [Concomitant]
     Dosage: 50 UKN, DAILY
     Dates: start: 20110201
  3. PRAVASTATIN [Concomitant]
     Dosage: 10 UKN,DAILY
     Dates: start: 20110201
  4. ASS [Concomitant]
     Dosage: 100 UKN, DAILY
     Dates: start: 20110201

REACTIONS (4)
  - Infection [Unknown]
  - Neutropenia [Unknown]
  - General physical health deterioration [Recovered/Resolved]
  - White blood cells urine positive [Unknown]
